FAERS Safety Report 18242908 (Version 2)
Quarter: 2021Q3

REPORT INFORMATION
  Report Type: Spontaneous
  Country: US (occurrence: US)
  Receive Date: 20200908
  Receipt Date: 20210917
  Transmission Date: 20211014
  Serious: Yes (Death, Congenital Anomaly, Other)
  Sender: FDA-Public Use
  Company Number: US-PURDUE-USA-2020-0165050

PATIENT
  Age: 65 Year
  Sex: Female

DRUGS (3)
  1. MS CONTIN [Suspect]
     Active Substance: MORPHINE SULFATE
     Indication: PRODUCT USED FOR UNKNOWN INDICATION
     Dosage: UNKNOWN
     Route: 048
  2. OXYCONTIN [Suspect]
     Active Substance: OXYCODONE HYDROCHLORIDE
     Indication: PRODUCT USED FOR UNKNOWN INDICATION
     Dosage: UNK
     Route: 048
  3. OXYFAST [Suspect]
     Active Substance: OXYCODONE
     Indication: PRODUCT USED FOR UNKNOWN INDICATION
     Dosage: UNKNOWN
     Route: 048

REACTIONS (12)
  - Dementia [Unknown]
  - Drug dependence [Unknown]
  - Dizziness [Unknown]
  - Congenital anomaly [Unknown]
  - Developmental delay [Unknown]
  - Gangrene [Fatal]
  - Arthralgia [Unknown]
  - Peripheral vascular disorder [Fatal]
  - Mood swings [Unknown]
  - Anxiety [Unknown]
  - Pain [Unknown]
  - Learning disability [Unknown]

NARRATIVE: CASE EVENT DATE: 20170509
